FAERS Safety Report 13599457 (Version 3)
Quarter: 2017Q2

REPORT INFORMATION
  Report Type: Spontaneous
  Country: US (occurrence: US)
  Receive Date: 20170531
  Receipt Date: 20170621
  Transmission Date: 20170830
  Serious: Yes (Other)
  Sender: FDA-Public Use
  Company Number: US-BAUSCH-BL-2017-017661

PATIENT
  Age: 57 Year
  Sex: Male
  Weight: 77.18 kg

DRUGS (2)
  1. LATANOPROST OPHTHALMIC SOLUTION 0.005% [Suspect]
     Active Substance: LATANOPROST
     Dosage: ONE DROP PER EYE
     Route: 047
     Dates: start: 20170517
  2. LATANOPROST OPHTHALMIC SOLUTION 0.005% [Suspect]
     Active Substance: LATANOPROST
     Indication: INTRAOCULAR PRESSURE TEST ABNORMAL
     Dosage: ONE DROP PER EYE
     Route: 065
     Dates: start: 2013

REACTIONS (4)
  - Drug ineffective [Unknown]
  - Intraocular pressure increased [Recovered/Resolved]
  - Expired product administered [Unknown]
  - Eye pain [Unknown]

NARRATIVE: CASE EVENT DATE: 201705
